FAERS Safety Report 17495093 (Version 1)
Quarter: 2020Q1

REPORT INFORMATION
  Report Type: Spontaneous
  Country: CA (occurrence: CA)
  Receive Date: 20200304
  Receipt Date: 20200304
  Transmission Date: 20200409
  Serious: Yes (Other)
  Sender: FDA-Public Use
  Company Number: CA-PFIZER INC-2020093188

PATIENT
  Age: 67 Year

DRUGS (3)
  1. BUPIVACAINE. [Suspect]
     Active Substance: BUPIVACAINE
     Dosage: 1.4 ML, UNK
     Route: 037
  2. MORPHINE SULFATE. [Suspect]
     Active Substance: MORPHINE SULFATE
     Indication: HIP ARTHROPLASTY
     Dosage: 100 UG, UNK
     Route: 037
  3. BUPIVACAINE. [Suspect]
     Active Substance: BUPIVACAINE
     Indication: HIP ARTHROPLASTY
     Dosage: UNK
     Route: 037

REACTIONS (2)
  - Hypercholesterolaemia [Recovered/Resolved]
  - Therapeutic product effect decreased [Recovered/Resolved]
